FAERS Safety Report 4440677-8 (Version None)
Quarter: 2004Q3

REPORT INFORMATION
  Report Type: 
  Country: None (occurrence: None)
  Receive Date: 20040903
  Receipt Date: 20040825
  Transmission Date: 20050211
  Serious: Yes (Death)
  Sender: FDA-Public Use
  Company Number: FR-JNJFOC-20040804085

PATIENT
  Age: 11 Year
  Sex: Female

DRUGS (6)
  1. PROPULSID [Suspect]
     Route: 049
     Dates: start: 20030126, end: 20040728
  2. LASIX [Concomitant]
     Indication: PULMONARY OEDEMA
     Route: 049
  3. TERCIAN [Concomitant]
     Route: 049
  4. NEXIUM [Concomitant]
     Route: 049
  5. MULTIVITAMIN [Concomitant]
  6. NUBAIN [Concomitant]
     Route: 042

REACTIONS (2)
  - CYSTIC FIBROSIS PANCREATIC [None]
  - RESPIRATORY FAILURE [None]
